FAERS Safety Report 13563155 (Version 2)
Quarter: 2017Q3

REPORT INFORMATION
  Report Type: Report from Study
  Country: JP (occurrence: JP)
  Receive Date: 20170519
  Receipt Date: 20170728
  Transmission Date: 20171127
  Serious: Yes (Other)
  Sender: FDA-Public Use
  Company Number: JP-009507513-1705JPN001184J

PATIENT
  Age: 80 Year
  Sex: Male
  Weight: 49 kg

DRUGS (20)
  1. ZOLPIDEM TARTRATE. [Concomitant]
     Active Substance: ZOLPIDEM TARTRATE
     Dosage: 5 MG, QD
     Route: 048
     Dates: start: 20160621, end: 20160806
  2. FEBURIC [Concomitant]
     Active Substance: FEBUXOSTAT
     Indication: PROPHYLAXIS
     Dosage: 10 MG, QD
     Route: 048
     Dates: start: 20160621, end: 20160806
  3. ISOSORBIDE DINITRATE. [Concomitant]
     Active Substance: ISOSORBIDE DINITRATE
     Indication: PROPHYLAXIS
     Dosage: 40 MG, QD
     Route: 062
     Dates: start: 20160621, end: 20160806
  4. BROTIZOLAM OD [Concomitant]
     Indication: PROPHYLAXIS
     Dosage: 0.3 MG, QD
     Route: 048
     Dates: start: 20160621, end: 20160806
  5. EDIROL [Concomitant]
     Active Substance: ELDECALCITOL
     Dosage: 0.8 MICROGRAM, QD
     Route: 048
     Dates: start: 20160621, end: 20160806
  6. GLAKAY [Concomitant]
     Active Substance: MENATETRENONE
     Dosage: 15 MG, TID
     Route: 048
     Dates: start: 20160621, end: 20160706
  7. DAIPHEN [Concomitant]
     Active Substance: SULFAMETHOXAZOLE\TRIMETHOPRIM
     Dosage: 4 DF, BID
     Route: 048
     Dates: start: 20150820, end: 20160811
  8. PLAVIX [Concomitant]
     Active Substance: CLOPIDOGREL BISULFATE
     Dosage: 75 MG, QD
     Route: 048
     Dates: start: 20160621, end: 20160806
  9. ACETAMINOPHEN. [Concomitant]
     Active Substance: ACETAMINOPHEN
     Indication: PROPHYLAXIS
     Dosage: 400 MG, BID
     Route: 048
     Dates: start: 20160629, end: 20160806
  10. MENATETRENONE [Concomitant]
     Active Substance: MENATETRENONE
     Dosage: 15 MG, TID
     Route: 048
     Dates: start: 20160713, end: 20160804
  11. SEIBULE [Concomitant]
     Active Substance: MIGLITOL
     Dosage: 50 MG, TID
     Route: 048
     Dates: start: 20160624
  12. RIFAPICINE [Concomitant]
     Indication: PROPHYLAXIS
     Dosage: 450 MG, QD
     Route: 048
     Dates: start: 20150801, end: 20160811
  13. DISTILLED WATER [Concomitant]
     Dosage: 6 ML, QD
     Route: 051
     Dates: start: 20160627, end: 20160706
  14. BIOFERMIN R [Concomitant]
     Active Substance: BACILLUS SUBTILIS\LACTOBACILLUS ACIDOPHILUS\STREPTOCOCCUS FAECAIS
     Dosage: 3 DF, TID
     Route: 048
     Dates: start: 20160628, end: 20160701
  15. SODIUM FERROUS CITRATE [Concomitant]
     Active Substance: SODIUM FERROUS CITRATE
     Indication: PROPHYLAXIS
     Dosage: 100 MG, QD
     Route: 048
     Dates: start: 20160621, end: 20160806
  16. CUBICIN [Suspect]
     Active Substance: DAPTOMYCIN
     Indication: STAPHYLOCOCCAL SEPSIS
     Dosage: 6.8 MG/KG, QD
     Route: 041
     Dates: start: 20160625, end: 20160708
  17. VANCOMYCIN [Concomitant]
     Active Substance: VANCOMYCIN
     Dosage: 500 MG, QID
     Route: 048
     Dates: start: 20160627, end: 20160706
  18. LEVOFLOXACIN HEMIHYDRATE [Concomitant]
     Active Substance: LEVOFLOXACIN
     Dosage: 500 MG, QD
     Route: 048
     Dates: start: 20160708, end: 20160808
  19. DALACIN [Concomitant]
     Active Substance: CLINDAMYCIN
     Dosage: 150 MG, QID
     Route: 048
     Dates: start: 20160625, end: 20160811
  20. FUROSEMIDE. [Concomitant]
     Active Substance: FUROSEMIDE
     Dosage: 20 MG, QD
     Route: 048
     Dates: start: 20160621, end: 20160806

REACTIONS (4)
  - Skin candida [Recovering/Resolving]
  - White blood cell count increased [Recovering/Resolving]
  - Drug ineffective [Unknown]
  - Overdose [Unknown]

NARRATIVE: CASE EVENT DATE: 20160625
